FAERS Safety Report 23456505 (Version 1)
Quarter: 2024Q1

REPORT INFORMATION
  Report Type: Spontaneous
  Country: CA (occurrence: None)
  Receive Date: 20240130
  Receipt Date: 20240130
  Transmission Date: 20240409
  Serious: Yes (Other)
  Sender: FDA-Public Use
  Company Number: CA-PFIZER INC-202400023572

PATIENT
  Age: 61 Year
  Sex: Female

DRUGS (3)
  1. METHOTREXATE [Suspect]
     Active Substance: METHOTREXATE
     Indication: Rheumatoid arthritis
     Dosage: 25 MG, WEEKLY
     Dates: start: 202205, end: 20240104
  2. RISEDRONATE SODIUM [Concomitant]
     Active Substance: RISEDRONATE SODIUM
     Dosage: 150 MG, WEEKLY (ONCE WEEKLY)
  3. VITAMIN D NOS [Concomitant]
     Active Substance: VITAMIN D NOS
     Dosage: 2000 IU, DAILY

REACTIONS (24)
  - Leukopenia [Unknown]
  - Shoulder operation [Unknown]
  - Cytopenia [Unknown]
  - Neutropenia [Unknown]
  - Bronchitis [Unknown]
  - Hypertransaminasaemia [Unknown]
  - Anaemia [Unknown]
  - Nausea [Unknown]
  - Pain [Unknown]
  - Illness [Recovering/Resolving]
  - Alopecia [Unknown]
  - Peripheral swelling [Unknown]
  - Skin hyperpigmentation [Not Recovered/Not Resolved]
  - Weight decreased [Unknown]
  - Chest pain [Unknown]
  - Arthralgia [Unknown]
  - Rash [Unknown]
  - Pyrexia [Unknown]
  - Back pain [Recovered/Resolved]
  - Dysstasia [Unknown]
  - Pain in extremity [Unknown]
  - Diarrhoea [Recovered/Resolved]
  - Oesophageal disorder [Unknown]
  - Condition aggravated [Unknown]

NARRATIVE: CASE EVENT DATE: 20220501
